FAERS Safety Report 5691769-7 (Version None)
Quarter: 2008Q2

REPORT INFORMATION
  Report Type: 
  Country: None (occurrence: None)
  Receive Date: 20080402
  Receipt Date: 20080320
  Transmission Date: 20081010
  Serious: Yes (Other)
  Sender: FDA-Public Use
  Company Number: CA-ELI_LILLY_AND_COMPANY-CA200803005271

PATIENT
  Sex: Male

DRUGS (2)
  1. CIALIS [Suspect]
     Dosage: 20 MG, UNK
     Route: 048
  2. CIALIS [Suspect]
     Dosage: 5 MG, UNK
     Route: 048
     Dates: start: 20080301

REACTIONS (2)
  - MIGRAINE [None]
  - PROSTATE CANCER [None]
